FAERS Safety Report 4721304-9 (Version None)
Quarter: 2005Q3

REPORT INFORMATION
  Report Type: 
  Country: None (occurrence: None)
  Receive Date: 20050721
  Receipt Date: 20040607
  Transmission Date: 20060218
  Serious: Yes (Hospitalization)
  Sender: FDA-Public Use
  Company Number: US-BRISTOL-MYERS SQUIBB COMPANY-12608808

PATIENT
  Age: 2 Month
  Sex: Male
  Weight: 4 kg

DRUGS (4)
  1. COUMADIN [Suspect]
     Indication: ARRHYTHMIA
     Dosage: BATCH/LOT/EXP REPORTED FOR 2MG TAB; 3 MG TABLET NDC# 56018801, EXP 31-JAN-2005, LOT#TE463A.SK
     Route: 048
     Dates: start: 20040526, end: 20040607
  2. LOVENOX [Concomitant]
  3. LASIX [Concomitant]
  4. ASPIRIN [Concomitant]

REACTIONS (1)
  - INTERNATIONAL NORMALISED RATIO FLUCTUATION [None]
